FAERS Safety Report 4763996-4 (Version None)
Quarter: 2005Q3

REPORT INFORMATION
  Report Type: 
  Country: None (occurrence: None)
  Receive Date: 20050906
  Receipt Date: 20050804
  Transmission Date: 20060218
  Serious: Yes (Hospitalization)
  Sender: FDA-Public Use
  Company Number: US_0505117961

PATIENT
  Age: 67 Year
  Sex: Female
  Weight: 75 kg

DRUGS (20)
  1. LEUCOVORIN CALCIUM [Suspect]
     Indication: COLORECTAL CANCER METASTATIC
     Dosage: 200 MG/M2
     Dates: start: 20050329
  2. FLUOROURACIL [Suspect]
     Indication: COLORECTAL CANCER METASTATIC
     Dosage: 400 MG/M2
     Dates: start: 20050329
  3. FLUOROURACIL [Suspect]
     Indication: COLORECTAL CANCER METASTATIC
     Dosage: 600 MG/M2
  4. OXALIPLATIN [Suspect]
     Indication: COLORECTAL CANCER METASTATIC
     Dosage: 85 MG/M2
     Dates: start: 20050329
  5. AVASTIN [Suspect]
     Indication: COLORECTAL CANCER METASTATIC
     Dosage: 5 MG/KG
     Dates: start: 20050329
  6. EVISTA [Concomitant]
  7. ZOCOR [Concomitant]
  8. PROPOLIS [Concomitant]
  9. MULTI-VITAMIN [Concomitant]
  10. CALCIUM GLUCONATE [Concomitant]
  11. ASCORBIC ACID [Concomitant]
  12. ASPIRIN [Concomitant]
  13. TYLENOL [Concomitant]
  14. IRON SULFATETHIAMIN COMPOUND TAB [Concomitant]
  15. AMBIEN [Concomitant]
  16. ZOFRAN [Concomitant]
  17. ATIVAN [Concomitant]
  18. EMLA [Concomitant]
  19. LOPERAMIDE [Concomitant]
  20. COMPAZINE [Concomitant]

REACTIONS (6)
  - ABDOMINAL ABSCESS [None]
  - ABDOMINAL PAIN [None]
  - BLOOD SODIUM DECREASED [None]
  - HAEMOGLOBIN DECREASED [None]
  - NEUTROPENIA [None]
  - PELVIC ABSCESS [None]
